FAERS Safety Report 4374973-X (Version None)
Quarter: 2004Q2

REPORT INFORMATION
  Report Type: 
  Country: None (occurrence: None)
  Receive Date: 20040604
  Receipt Date: 20040519
  Transmission Date: 20050107
  Serious: No
  Sender: FDA-Public Use
  Company Number: 2004AP00001

PATIENT
  Age: 52 Year
  Sex: Female

DRUGS (2)
  1. ARIMIDEX [Suspect]
     Indication: BREAST CANCER
     Dosage: 1 MG DAILY PO
     Route: 048
     Dates: start: 20030930, end: 20031125
  2. UFT [Suspect]
     Indication: BREAST CANCER
     Dosage: 3 DF DAILY PO
     Route: 048
     Dates: start: 20030930, end: 20031125

REACTIONS (3)
  - BLOOD CHOLESTEROL INCREASED [None]
  - RHABDOMYOLYSIS [None]
  - THYROID FUNCTION TEST ABNORMAL [None]
